FAERS Safety Report 9205240 (Version 1)
Quarter: 2013Q2

REPORT INFORMATION
  Report Type: Spontaneous
  Country: CH (occurrence: CH)
  Receive Date: 20130402
  Receipt Date: 20130402
  Transmission Date: 20140414
  Serious: Yes (Other)
  Sender: FDA-Public Use
  Company Number: PHHY2013CH030759

PATIENT
  Age: 88 Year
  Sex: Female
  Weight: 58 kg

DRUGS (1)
  1. RASILAMLO HCT [Suspect]
     Indication: HYPERTENSION
     Dosage: 1 DF (150/5/12.5 MG), UNK
     Dates: start: 20121223, end: 20130121

REACTIONS (3)
  - Drug intolerance [Unknown]
  - Pruritus [Unknown]
  - Rash [Unknown]
